FAERS Safety Report 5779470-2 (Version None)
Quarter: 2008Q2

REPORT INFORMATION
  Report Type: 
  Country: None (occurrence: None)
  Receive Date: 20080619
  Receipt Date: 20080107
  Transmission Date: 20081010
  Serious: No
  Sender: FDA-Public Use
  Company Number: US-ASTRAZENECA-2008UW00433

PATIENT
  Age: 78 Year
  Sex: Female
  Weight: 65.8 kg

DRUGS (15)
  1. ATACAND [Suspect]
     Indication: HYPERTENSION
     Route: 048
     Dates: start: 20071201
  2. ACEBUTOLOL [Concomitant]
  3. ALTACE [Concomitant]
  4. COENZYME Q10 [Concomitant]
  5. FUROSEMIDE [Concomitant]
  6. MAGNESIUM OXIDE [Concomitant]
  7. AMIODARONE HCL [Concomitant]
  8. ISOSORBIDE MONONITRATE [Concomitant]
  9. PLAVIX [Concomitant]
  10. ARIMIDEX [Concomitant]
  11. ASPIRIN [Concomitant]
  12. DIGOXIN [Concomitant]
  13. LIPITOR [Concomitant]
  14. NITRO-DUR [Concomitant]
  15. LANTUS [Concomitant]

REACTIONS (7)
  - ASTHENIA [None]
  - BLOOD PRESSURE DECREASED [None]
  - DIZZINESS [None]
  - FATIGUE [None]
  - HOT FLUSH [None]
  - TREMOR [None]
  - VISION BLURRED [None]
